FAERS Safety Report 7257679-9 (Version None)
Quarter: 2011Q1

REPORT INFORMATION
  Report Type: 
  Country: None (occurrence: None)
  Receive Date: 20110129
  Receipt Date: 20100519
  Transmission Date: 20110831
  Serious: No
  Sender: FDA-Public Use
  Company Number: US-ABBOTT-10P-163-0646808-00

PATIENT
  Sex: Female
  Weight: 54.48 kg

DRUGS (3)
  1. HUMIRA [Suspect]
     Indication: CROHN'S DISEASE
     Route: 050
     Dates: start: 20070901, end: 20090301
  2. HUMIRA [Suspect]
     Dates: start: 20090301, end: 20091201
  3. HUMIRA [Suspect]
     Dates: start: 20100201, end: 20100301

REACTIONS (5)
  - IMPAIRED HEALING [None]
  - CLOSTRIDIAL INFECTION [None]
  - DRUG INEFFECTIVE [None]
  - PHARYNGITIS STREPTOCOCCAL [None]
  - LACERATION [None]
